FAERS Safety Report 5444059-1 (Version None)
Quarter: 2007Q3

REPORT INFORMATION
  Report Type: 
  Country: None (occurrence: None)
  Receive Date: 20070831
  Receipt Date: 20070817
  Transmission Date: 20080115
  Serious: Yes (Death)
  Sender: FDA-Public Use
  Company Number: RENA-12265

PATIENT
  Age: 66 Year
  Sex: Male

DRUGS (6)
  1. RENAGEL [Suspect]
     Indication: HYPERPHOSPHATAEMIA
     Dates: start: 20040201
  2. INSULIN [Concomitant]
  3. IMDUR. MFR: ASTRA PHARMACEUTICAL PRODUCTS, INC. [Concomitant]
  4. NORVASC. MFR: PFIZER LABORATORIES [Concomitant]
  5. ATENOLOL [Concomitant]
  6. ASA. MFR: LILLY  ELI AND COMPANY [Concomitant]

REACTIONS (1)
  - CARDIAC ARREST [None]
